FAERS Safety Report 8852588 (Version 2)
Quarter: 2013Q1

REPORT INFORMATION
  Report Type: Spontaneous
  Country: US (occurrence: US)
  Receive Date: 20121022
  Receipt Date: 20130325
  Transmission Date: 20140127
  Serious: No
  Sender: FDA-Public Use
  Company Number: US-ASTRAZENECA-2012SE76363

PATIENT
  Age: 52 Year
  Sex: Male

DRUGS (3)
  1. NEXIUM [Suspect]
     Route: 048
  2. NEXIUM [Suspect]
     Route: 048
  3. NEXIUM [Suspect]
     Route: 048

REACTIONS (8)
  - Gastrooesophageal reflux disease [Unknown]
  - Ulcer [Unknown]
  - Choking [Unknown]
  - Dysphagia [Unknown]
  - Arthritis [Unknown]
  - Off label use [Unknown]
  - Intentional drug misuse [Unknown]
  - Drug dose omission [Unknown]
